FAERS Safety Report 22110094 (Version 1)
Quarter: 2023Q1

REPORT INFORMATION
  Report Type: Spontaneous
  Country: AU (occurrence: None)
  Receive Date: 20230317
  Receipt Date: 20230317
  Transmission Date: 20230417
  Serious: Yes (Other)
  Sender: FDA-Public Use
  Company Number: 2023A059173

PATIENT
  Sex: Female

DRUGS (6)
  1. OSIMERTINIB [Suspect]
     Active Substance: OSIMERTINIB
     Route: 048
  2. GEFITINIB [Suspect]
     Active Substance: GEFITINIB
     Route: 048
  3. PEMETREXED DISODIUM [Suspect]
     Active Substance: PEMETREXED DISODIUM
  4. BEVACIZUMAB [Suspect]
     Active Substance: BEVACIZUMAB
  5. ATEZOLIZUMAB [Suspect]
     Active Substance: ATEZOLIZUMAB
  6. CARBOPLATIN [Suspect]
     Active Substance: CARBOPLATIN

REACTIONS (2)
  - Lung neoplasm malignant [Unknown]
  - Neoplasm [Unknown]
